FAERS Safety Report 5849190-4 (Version None)
Quarter: 2008Q3

REPORT INFORMATION
  Report Type: 
  Country: None (occurrence: None)
  Receive Date: 20080815
  Receipt Date: 20080804
  Transmission Date: 20090109
  Serious: Yes (Hospitalization)
  Sender: FDA-Public Use
  Company Number: 237365J08USA

PATIENT
  Age: 44 Year
  Sex: Female
  Weight: 68.0396 kg

DRUGS (9)
  1. REBIF [Suspect]
     Indication: MULTIPLE SCLEROSIS
     Dosage: 44 MCG, 3 IN 1 WEEKS, SUBCUTANEOUS
     Route: 058
     Dates: start: 20071109
  2. IMURAN [Concomitant]
  3. ASACOL [Concomitant]
  4. XALATAN [Concomitant]
  5. ALPHAGAN [Concomitant]
  6. NEURONTIN [Concomitant]
  7. COSOPT (COSOPT) [Concomitant]
  8. NEXIUM [Concomitant]
  9. REMICADE [Concomitant]

REACTIONS (1)
  - PNEUMONIA [None]
